FAERS Safety Report 18777950 (Version 3)
Quarter: 2021Q1

REPORT INFORMATION
  Report Type: Report from Study
  Country: CA (occurrence: CA)
  Receive Date: 20210123
  Receipt Date: 20210311
  Transmission Date: 20210419
  Serious: Yes (Hospitalization)
  Sender: FDA-Public Use
  Company Number: CA-TAKEDA-CA202001360

PATIENT
  Age: 21 Year
  Sex: Male
  Weight: 63.6 kg

DRUGS (10)
  1. IDURSULFASE [Suspect]
     Active Substance: IDURSULFASE
     Dosage: UNK
     Route: 065
     Dates: start: 20200227
  2. IDURSULFASE [Suspect]
     Active Substance: IDURSULFASE
     Dosage: 0.5 MILLIGRAM/KILOGRAM
     Route: 065
     Dates: start: 20070501
  3. IDURSULFASE [Suspect]
     Active Substance: IDURSULFASE
     Dosage: 5 DOSAGE FORM, 1/WEEK
     Route: 065
     Dates: start: 20070501
  4. IDURSULFASE [Suspect]
     Active Substance: IDURSULFASE
     Dosage: UNK, UNKNOWN
     Route: 065
     Dates: start: 20200109
  5. IDURSULFASE [Suspect]
     Active Substance: IDURSULFASE
     Dosage: 0.5 MILLIGRAM/KILOGRAM
     Route: 065
     Dates: start: 20070501
  6. IDURSULFASE [Suspect]
     Active Substance: IDURSULFASE
     Dosage: 33 MILLIGRAM, 1X/WEEK
     Route: 065
     Dates: start: 20070501
  7. IDURSULFASE [Suspect]
     Active Substance: IDURSULFASE
     Dosage: 33 MILLIGRAM, 1/WEEK
     Route: 065
     Dates: start: 20070501
  8. IDURSULFASE [Suspect]
     Active Substance: IDURSULFASE
     Dosage: UNK
     Route: 065
     Dates: start: 20200220
  9. IDURSULFASE [Suspect]
     Active Substance: IDURSULFASE
     Dosage: 33 MILLIGRAM, 1X/WEEK
     Route: 065
     Dates: start: 20070501
  10. IDURSULFASE [Suspect]
     Active Substance: IDURSULFASE
     Indication: MUCOPOLYSACCHARIDOSIS II
     Dosage: 33 MILLIGRAM, 1X/WEEK
     Route: 065
     Dates: start: 20070501

REACTIONS (12)
  - Medical device site swelling [Not Recovered/Not Resolved]
  - Decubitus ulcer [Not Recovered/Not Resolved]
  - Superior vena cava syndrome [Not Recovered/Not Resolved]
  - Heart rate increased [Unknown]
  - Blood pressure increased [Unknown]
  - Musculoskeletal stiffness [Recovered/Resolved]
  - Device breakage [Unknown]
  - Pain in extremity [Recovering/Resolving]
  - Respiratory rate increased [Unknown]
  - Tracheostomy [Not Recovered/Not Resolved]
  - Pyrexia [Unknown]
  - Infusion related reaction [Recovered/Resolved]

NARRATIVE: CASE EVENT DATE: 20200108
